FAERS Safety Report 5658911-5 (Version None)
Quarter: 2008Q1

REPORT INFORMATION
  Report Type: 
  Country: None (occurrence: None)
  Receive Date: 20080310
  Receipt Date: 20070509
  Transmission Date: 20080703
  Serious: No
  Sender: FDA-Public Use
  Company Number: US-BAYER-200711471BCC

PATIENT
  Sex: Female
  Weight: 72 kg

DRUGS (7)
  1. ALEVE [Suspect]
     Indication: ARTHRITIS
     Dosage: TOTAL DAILY DOSE: 440 MG  UNIT DOSE: 220 MG
     Route: 048
  2. HIGH BLOOD PRESSURE MEDICATION [Concomitant]
  3. TRICOR [Concomitant]
  4. FOSAMAX [Concomitant]
  5. VITAMINS [Concomitant]
  6. VITAMIN E [Concomitant]
  7. ASPIRIN [Concomitant]

REACTIONS (1)
  - INSOMNIA [None]
